FAERS Safety Report 4732957-3 (Version None)
Quarter: 2005Q3

REPORT INFORMATION
  Report Type: 
  Country: None (occurrence: None)
  Receive Date: 20050801
  Receipt Date: 20040825
  Transmission Date: 20060218
  Serious: Yes (Hospitalization)
  Sender: FDA-Public Use
  Company Number: 2004228045FI

PATIENT
  Age: 92 Year
  Sex: Female

DRUGS (11)
  1. BEXTRA [Suspect]
     Indication: OSTEOARTHRITIS
     Dosage: 10 MG (1 D), ORAL
     Route: 048
     Dates: start: 20040730, end: 20040101
  2. BEXTRA [Suspect]
     Indication: PAIN
     Dosage: 10 MG (1 D), ORAL
     Route: 048
     Dates: start: 20040730, end: 20040101
  3. ALL OTHER THERAPEUTIC PRODUCTS (ALL OTHER THERAPEUTIC PRODUCTS) [Suspect]
     Indication: URTICARIA
     Dosage: TOPICAL
     Route: 061
  4. ISOSORBIDE DINITRATE [Concomitant]
  5. FUROSEMIDE (FUROSEMIDE) [Concomitant]
  6. CARVEDILOL [Concomitant]
  7. RAMIPRIL [Concomitant]
  8. PHENYTOIN (PHENYTHOIN SODIUM) [Concomitant]
  9. RISEDRONATE SODIUM (RISEDRONATE SODIUM) [Concomitant]
  10. VITAMIDYNE A AND D (ERGOCALCIFEROL, RETINOL) [Concomitant]
  11. NULYTELY (MACROGOL, POTASSIUM CHLORIDE, SODIUM BICARBONATE, SODIUM CHL [Concomitant]

REACTIONS (4)
  - ANGIONEUROTIC OEDEMA [None]
  - CARDIAC FAILURE [None]
  - OEDEMA PERIPHERAL [None]
  - URTICARIA [None]
